FAERS Safety Report 17063619 (Version 3)
Quarter: 2019Q4

REPORT INFORMATION
  Report Type: Report from Study
  Country: CA (occurrence: CA)
  Receive Date: 20191122
  Receipt Date: 20191219
  Transmission Date: 20200122
  Serious: No
  Sender: FDA-Public Use
  Company Number: CA-BEH-2019109774

PATIENT
  Age: 62 Year
  Sex: Female

DRUGS (3)
  1. HIZENTRA [Suspect]
     Active Substance: HUMAN IMMUNOGLOBULIN G
     Dosage: UNK
     Route: 058
  2. HIZENTRA [Suspect]
     Active Substance: HUMAN IMMUNOGLOBULIN G
     Indication: SECONDARY IMMUNODEFICIENCY
     Dosage: 5 GRAM, QW
     Route: 058
     Dates: start: 20191120
  3. HIZENTRA [Suspect]
     Active Substance: HUMAN IMMUNOGLOBULIN G
     Dosage: UNK
     Route: 058

REACTIONS (7)
  - Injection site erythema [Recovered/Resolved with Sequelae]
  - Injection site nodule [Unknown]
  - Fatigue [Not Recovered/Not Resolved]
  - Injection site bruising [Recovered/Resolved with Sequelae]
  - Fatigue [Recovered/Resolved]
  - Palpitations [Recovered/Resolved]
  - Injection site pain [Recovered/Resolved with Sequelae]

NARRATIVE: CASE EVENT DATE: 2019
